FAERS Safety Report 12317754 (Version 1)
Quarter: 2016Q2

REPORT INFORMATION
  Report Type: Spontaneous
  Country: FR (occurrence: FR)
  Receive Date: 20160429
  Receipt Date: 20160429
  Transmission Date: 20160815
  Serious: Yes (Other)
  Sender: FDA-Public Use
  Company Number: FR-TEVA-654823ISR

PATIENT
  Age: 68 Year
  Sex: Male

DRUGS (2)
  1. ESTREVA [Suspect]
     Active Substance: ESTRADIOL
     Route: 048
  2. ANDROCUR [Suspect]
     Active Substance: CYPROTERONE ACETATE
     Dosage: 2 TO 3 DF DAILY
     Route: 048

REACTIONS (1)
  - Hypochromic anaemia [Unknown]
